FAERS Safety Report 17836426 (Version 1)
Quarter: 2020Q2

REPORT INFORMATION
  Report Type: Report from Study
  Country: CN (occurrence: CN)
  Receive Date: 20200528
  Receipt Date: 20200528
  Transmission Date: 20200714
  Serious: Yes (Other)
  Sender: FDA-Public Use
  Company Number: CN-JNJFOC-20200525887

PATIENT

DRUGS (2)
  1. CLOZAPINE. [Suspect]
     Active Substance: CLOZAPINE
     Indication: SCHIZOPHRENIA
     Route: 065
  2. RISPERDAL [Suspect]
     Active Substance: RISPERIDONE
     Indication: SCHIZOPHRENIA
     Route: 065

REACTIONS (9)
  - Nausea [Unknown]
  - Extrapyramidal disorder [Unknown]
  - Vision blurred [Unknown]
  - Hypokalaemia [Unknown]
  - Decreased appetite [Unknown]
  - Adverse event [Unknown]
  - Vomiting [Unknown]
  - Asthenia [Unknown]
  - Tachycardia [Unknown]
